FAERS Safety Report 6346969-X (Version None)
Quarter: 2009Q3

REPORT INFORMATION
  Report Type: 
  Country: None (occurrence: None)
  Receive Date: 20090909
  Receipt Date: 20090909
  Transmission Date: 20100115
  Serious: No
  Sender: FDA-Public Use
  Company Number: None

PATIENT
  Age: 52 Year
  Sex: Male
  Weight: 77.1115 kg

DRUGS (1)
  1. VASOTEC [Suspect]
     Indication: HYPERTENSION
     Dosage: ? ONCE IV BOLUS MINUTES
     Route: 040
     Dates: start: 20090903, end: 20090904

REACTIONS (1)
  - ABDOMINAL PAIN UPPER [None]
